FAERS Safety Report 7163023-8 (Version None)
Quarter: 2010Q4

REPORT INFORMATION
  Report Type: 
  Country: None (occurrence: None)
  Receive Date: 20101215
  Receipt Date: 20100211
  Transmission Date: 20110411
  Serious: Yes (Other)
  Sender: FDA-Public Use
  Company Number: US-PFIZER INC-2010021364

PATIENT
  Sex: Female
  Weight: 90.718 kg

DRUGS (3)
  1. LYRICA [Suspect]
     Indication: PAIN
     Dosage: 50 MG, 2X/DAY
     Route: 048
     Dates: start: 20090101
  2. XANAX [Concomitant]
     Dosage: UNK
  3. CELEXA [Concomitant]
     Dosage: UNK

REACTIONS (3)
  - BLADDER DISCOMFORT [None]
  - JOINT SWELLING [None]
  - SOMNOLENCE [None]
